FAERS Safety Report 9744530 (Version 1)
Quarter: 2013Q4

REPORT INFORMATION
  Report Type: Spontaneous
  Country: CH (occurrence: CH)
  Receive Date: 20131210
  Receipt Date: 20131210
  Transmission Date: 20140711
  Serious: Yes (Death, Hospitalization)
  Sender: FDA-Public Use
  Company Number: CH-TEVA-447866ISR

PATIENT
  Age: 65 Year
  Sex: Female
  Weight: 39 kg

DRUGS (6)
  1. CISPLATIN-TEVA [Suspect]
     Indication: BLADDER TRANSITIONAL CELL CARCINOMA
     Dosage: 100 MILLIGRAM DAILY; TOTAL DOSE: 2 (ADMINISTERED ON 24-SEP-13 AND 22-OCT-13)
     Route: 041
     Dates: start: 20130924, end: 20131022
  2. AMLODIPINE [Suspect]
     Dosage: 5 MILLIGRAM DAILY;
     Route: 048
  3. GEMZAR [Suspect]
     Indication: BLADDER TRANSITIONAL CELL CARCINOMA
     Dosage: 1300 MILLIGRAM DAILY; TOTAL DOSE: 4 (ADMINISTERED ON 24-SEP-13, 22-OCT-13, 01-NOV-13 AND 08-NOV-13)
     Route: 041
     Dates: start: 20130924, end: 20131108
  4. ACIDUM FOLICUM [Concomitant]
     Dosage: .7143 MILLIGRAM DAILY;
     Route: 048
  5. MALTOFER [Concomitant]
     Dosage: 20 GTT DAILY;
     Route: 048
  6. VITAMIN D3 STREULI [Concomitant]
     Dosage: 8 GTT DAILY; 1 GTT = 4000IU
     Route: 048

REACTIONS (11)
  - Arterial thrombosis [Fatal]
  - Mesenteric artery thrombosis [Fatal]
  - Intestinal ischaemia [Fatal]
  - Ileus [Fatal]
  - Hepatic necrosis [Fatal]
  - Hepatic enzyme increased [Fatal]
  - Abdominal pain [Fatal]
  - C-reactive protein increased [Fatal]
  - Hydronephrosis [Fatal]
  - Escherichia infection [Fatal]
  - Acinetobacter infection [Fatal]
